FAERS Safety Report 11745286 (Version 1)
Quarter: 2015Q4

REPORT INFORMATION
  Report Type: Other
  Country: MX (occurrence: MX)
  Receive Date: 20151117
  Receipt Date: 20151117
  Transmission Date: 20160304
  Serious: Yes (Other)
  Sender: FDA-Public Use
  Company Number: MX-LUPIN PHARMACEUTICALS INC.-2015-03580

PATIENT
  Age: 33 Year
  Sex: Female

DRUGS (1)
  1. LEVONORGESTREL. [Suspect]
     Active Substance: LEVONORGESTREL
     Indication: PRODUCT USED FOR UNKNOWN INDICATION
     Route: 065

REACTIONS (1)
  - Pyelocaliectasis [Recovered/Resolved]
